FAERS Safety Report 6153313-X (Version None)
Quarter: 2009Q2

REPORT INFORMATION
  Report Type: 
  Country: None (occurrence: None)
  Receive Date: 20090413
  Receipt Date: 20090330
  Transmission Date: 20091009
  Serious: Yes (Hospitalization, Other)
  Sender: FDA-Public Use
  Company Number: CA-GENENTECH-280336

PATIENT
  Sex: Female

DRUGS (2)
  1. LUCENTIS [Suspect]
     Indication: MACULAR DEGENERATION
     Dosage: 10 ML, UNK
     Route: 031
     Dates: start: 20090324
  2. CLONAZEPAM [Concomitant]
     Indication: ANXIETY
     Dosage: UNK

REACTIONS (1)
  - CORNEAL ABRASION [None]
